FAERS Safety Report 20334266 (Version 2)
Quarter: 2022Q1

REPORT INFORMATION
  Report Type: Other
  Country: US (occurrence: None)
  Receive Date: 20220113
  Receipt Date: 20220214
  Transmission Date: 20220423
  Serious: Yes (Other)
  Sender: FDA-Public Use
  Company Number: US-ROCHE-3000483

PATIENT
  Sex: Female

DRUGS (9)
  1. ALECENSA [Suspect]
     Active Substance: ALECTINIB HYDROCHLORIDE
     Indication: Bronchial carcinoma
     Dosage: TAKE 4 CAPSULE(S) TWICE A DAY WITH FOOD
     Route: 048
  2. ASCORBIC ACID [Concomitant]
     Active Substance: ASCORBIC ACID
     Route: 048
  3. ASPIRIN [Concomitant]
     Active Substance: ASPIRIN
  4. DEXAMETHASONE [Concomitant]
     Active Substance: DEXAMETHASONE
     Route: 048
  5. LUTEIN [Concomitant]
     Active Substance: LUTEIN
     Route: 048
  6. MECLIZINE [Concomitant]
     Active Substance: MECLIZINE HYDROCHLORIDE
     Route: 048
  7. OMEPRAZOLE [Concomitant]
     Active Substance: OMEPRAZOLE
     Route: 048
  8. VITAMIN C [Concomitant]
     Active Substance: ASCORBIC ACID
  9. SPIRIVA [Concomitant]
     Active Substance: TIOTROPIUM BROMIDE MONOHYDRATE

REACTIONS (1)
  - Diverticulitis [Unknown]
